FAERS Safety Report 9197220 (Version 2)
Quarter: 2014Q1

REPORT INFORMATION
  Report Type: Spontaneous
  Country: US (occurrence: US)
  Receive Date: 20130328
  Receipt Date: 20140204
  Transmission Date: 20141002
  Serious: Yes (Other)
  Sender: FDA-Public Use
  Company Number: US-NOVOPROD-374280

PATIENT
  Age: 66 Year
  Sex: Female
  Weight: 83.9 kg

DRUGS (11)
  1. VICTOZA [Suspect]
     Indication: TYPE 2 DIABETES MELLITUS
     Dosage: 18 ?G, QD
     Route: 058
     Dates: start: 20100831, end: 20110112
  2. BYETTA [Suspect]
     Indication: TYPE 2 DIABETES MELLITUS
     Dosage: 5 ?G, BID
     Route: 058
     Dates: start: 20060209, end: 20060407
  3. BYETTA [Suspect]
     Dosage: 10
     Dates: start: 20060306, end: 20100618
  4. JANUMET /06535301/ [Suspect]
     Indication: TYPE 2 DIABETES MELLITUS
     Dosage: 50/500, BID
     Route: 048
     Dates: start: 20071129, end: 20090714
  5. DIOVAN [Concomitant]
     Indication: HYPERTENSION
     Dosage: UNK
     Route: 048
     Dates: start: 1996
  6. LEVOTHYROXINE [Concomitant]
     Indication: THYROID DISORDER
     Dosage: UNK
     Route: 048
     Dates: start: 2011
  7. CYMBALTA [Concomitant]
     Indication: DEPRESSION
     Dosage: UNK
     Route: 048
     Dates: start: 2000
  8. TRICOR                             /00499301/ [Concomitant]
     Indication: BLOOD CHOLESTEROL INCREASED
  9. PLAVIX [Concomitant]
     Indication: THROMBOSIS
     Dosage: UNK
     Route: 048
     Dates: start: 2012
  10. LANTUS [Concomitant]
     Indication: DIABETES MELLITUS
     Dosage: UNK
     Route: 058
  11. NOVOLOG [Concomitant]
     Indication: DIABETES MELLITUS
     Dosage: UNK
     Route: 058
     Dates: start: 2012

REACTIONS (1)
  - Pancreatic carcinoma [Unknown]
